FAERS Safety Report 10332620 (Version 4)
Quarter: 2015Q1

REPORT INFORMATION
  Report Type: Spontaneous
  Country: DE (occurrence: DE)
  Receive Date: 20140722
  Receipt Date: 20150310
  Transmission Date: 20150720
  Serious: Yes (Life-Threatening, Hospitalization, Other)
  Sender: FDA-Public Use
  Company Number: DE-GLAXOSMITHKLINE-D0084778A

PATIENT
  Age: 85 Year
  Sex: Female
  Weight: 65 kg

DRUGS (10)
  1. DOXY [Concomitant]
     Active Substance: DOXYCYCLINE
     Indication: RASH
     Route: 048
     Dates: start: 20140627, end: 20140701
  2. PANTOPRAZOLE [Concomitant]
     Active Substance: PANTOPRAZOLE SODIUM
     Route: 048
  3. DECORTIN [Concomitant]
     Active Substance: PREDNISONE
     Indication: RASH
     Route: 048
     Dates: start: 20140627, end: 20140701
  4. AMIODARON [Concomitant]
     Active Substance: AMIODARONE
     Route: 048
  5. TAFINLAR [Suspect]
     Active Substance: DABRAFENIB MESYLATE
     Dosage: 75 MG, QD
     Dates: start: 20140627, end: 20140701
  6. MARCUMAR [Concomitant]
     Active Substance: PHENPROCOUMON
     Route: 048
  7. TAFINLAR [Suspect]
     Active Substance: DABRAFENIB MESYLATE
     Indication: METASTATIC MALIGNANT MELANOMA
     Dosage: 75 MG, UNK
     Route: 048
     Dates: start: 20140618, end: 20140626
  8. VALSARTAN. [Concomitant]
     Active Substance: VALSARTAN
     Route: 048
  9. FUROSEMID [Concomitant]
     Active Substance: FUROSEMIDE
     Route: 048
  10. L-THYROXIN [Concomitant]
     Active Substance: LEVOTHYROXINE SODIUM
     Route: 048

REACTIONS (11)
  - Dermatitis bullous [Recovering/Resolving]
  - Dermatitis allergic [Recovering/Resolving]
  - C-reactive protein increased [Recovered/Resolved]
  - Generalised erythema [Recovering/Resolving]
  - Pruritus generalised [Recovering/Resolving]
  - Nausea [Recovering/Resolving]
  - Leukocytosis [Recovered/Resolved]
  - Erythema multiforme [Recovering/Resolving]
  - Urticaria [Recovering/Resolving]
  - Hyponatraemia [Unknown]
  - Rash macular [Recovering/Resolving]

NARRATIVE: CASE EVENT DATE: 201406
